FAERS Safety Report 7809313-4 (Version None)
Quarter: 2011Q4

REPORT INFORMATION
  Report Type: 
  Country: None (occurrence: None)
  Receive Date: 20111006
  Receipt Date: 20110923
  Transmission Date: 20120403
  Serious: Yes (Other)
  Sender: FDA-Public Use
  Company Number: 2011SP045378

PATIENT
  Sex: Male

DRUGS (2)
  1. PEG-INTRON [Suspect]
     Indication: HEPATITIS C
     Dates: start: 20110114
  2. RIBAVIRIN [Suspect]
     Indication: HEPATITIS C
     Dates: start: 20110114

REACTIONS (8)
  - CONCUSSION [None]
  - LACERATION [None]
  - EXCORIATION [None]
  - JOINT DISLOCATION [None]
  - EYE INJURY [None]
  - FALL [None]
  - TUMOUR HAEMORRHAGE [None]
  - WRIST FRACTURE [None]
